FAERS Safety Report 25475547 (Version 3)
Quarter: 2025Q3

REPORT INFORMATION
  Report Type: Report from Study
  Country: US (occurrence: US)
  Receive Date: 20250624
  Receipt Date: 20250724
  Transmission Date: 20251020
  Serious: Yes (Other)
  Sender: MALLINCKRODT
  Company Number: US-MALLINCKRODT-MNK202503838

PATIENT
  Age: 6 Month
  Sex: Female
  Weight: 8 kg

DRUGS (6)
  1. CORTICOTROPIN [Suspect]
     Active Substance: CORTICOTROPIN
     Indication: Infantile spasms
     Route: 030
     Dates: start: 20250612, end: 2025
  2. CORTICOTROPIN [Suspect]
     Active Substance: CORTICOTROPIN
     Dates: start: 2025
  3. PEPSIN [Concomitant]
     Active Substance: PEPSIN
  4. PEPSIN [Concomitant]
     Active Substance: PEPSIN
  5. VIGABATRIN [Concomitant]
     Active Substance: VIGABATRIN
  6. VIGABATRIN [Concomitant]
     Active Substance: VIGABATRIN

REACTIONS (8)
  - Infantile spasms [Not Recovered/Not Resolved]
  - Disease recurrence [Not Recovered/Not Resolved]
  - Stool pH decreased [Unknown]
  - Dermatitis diaper [Recovering/Resolving]
  - Increased appetite [Unknown]
  - Insomnia [Unknown]
  - Swelling face [Recovering/Resolving]
  - Irritability [Unknown]

NARRATIVE: CASE EVENT DATE: 20250101
